FAERS Safety Report 10900993 (Version 1)
Quarter: 2015Q1

REPORT INFORMATION
  Report Type: Spontaneous
  Country: US (occurrence: None)
  Receive Date: 20150303
  Receipt Date: 20150303
  Transmission Date: 20150721
  Serious: Yes (Hospitalization)
  Sender: FDA-Public Use
  Company Number: None

PATIENT
  Age: 24 Year
  Sex: Female
  Weight: 96.62 kg

DRUGS (11)
  1. HALDOL [Concomitant]
     Active Substance: HALOPERIDOL
  2. SYNTHROID [Concomitant]
     Active Substance: LEVOTHYROXINE SODIUM
  3. ATIVAN [Concomitant]
     Active Substance: LORAZEPAM
  4. LISINOPRIL. [Concomitant]
     Active Substance: LISINOPRIL
  5. PRAZOSIN [Concomitant]
     Active Substance: PRAZOSIN
  6. CLARITIN [Concomitant]
     Active Substance: LORATADINE
  7. NALTREXONE [Concomitant]
     Active Substance: NALTREXONE
  8. ADVAIR HFA [Concomitant]
     Active Substance: FLUTICASONE PROPIONATE\SALMETEROL XINAFOATE
  9. CHLORPROMAZINE [Suspect]
     Active Substance: CHLORPROMAZINE
     Indication: SCHIZOAFFECTIVE DISORDER
     Dosage: 5 PILLS
     Route: 048
     Dates: start: 20150226, end: 20150227
  10. MELATONIN [Concomitant]
     Active Substance: MELATONIN
  11. PRILOSEC [Concomitant]
     Active Substance: OMEPRAZOLE MAGNESIUM

REACTIONS (1)
  - Seizure [None]

NARRATIVE: CASE EVENT DATE: 20150227
